FAERS Safety Report 9528748 (Version 1)
Quarter: 2013Q3

REPORT INFORMATION
  Report Type: Report from Study
  Country: JP (occurrence: JP)
  Receive Date: 20130917
  Receipt Date: 20130917
  Transmission Date: 20140515
  Serious: Yes (Death)
  Sender: FDA-Public Use
  Company Number: JP-SANOFI-AVENTIS-2013SA091836

PATIENT
  Sex: Male

DRUGS (4)
  1. DEXAMETHASONE [Suspect]
     Indication: PROSTATE CANCER METASTATIC
     Dosage: DOSE ADMINISTERED DAILY IN A  3 WEEKLY CYCLE
     Route: 048
  2. DOCETAXEL [Suspect]
     Indication: PROSTATE CANCER METASTATIC
     Dosage: DOSE ADMINISTERED OVER 1 HOUR ON DAY 2 AND 9 IN 3 WEEKLY CYCLE
     Route: 042
  3. ESTRAMUSTINE PHOSPHATE [Suspect]
     Indication: PROSTATE CANCER METASTATIC
     Dosage: DOSE ADMINISTERED DAILY FROM DAY 1 TO DAY 3 AND FROM DAY 8 TO DAY 10 IN A 3 WEEKLY CYCLE
     Route: 048
  4. DEXAMETHASONE [Concomitant]
     Indication: PROPHYLAXIS
     Dosage: 8 MG/BODY
     Route: 042

REACTIONS (2)
  - Pneumonitis [Fatal]
  - Respiratory failure [Fatal]
